FAERS Safety Report 23928397 (Version 1)
Quarter: 2024Q2

REPORT INFORMATION
  Report Type: Spontaneous
  Country: US (occurrence: US)
  Receive Date: 20240531
  Receipt Date: 20240531
  Transmission Date: 20240716
  Serious: No
  Sender: FDA-Public Use
  Company Number: US-RADIUS HEALTH INC.-2024US001224

PATIENT
  Age: 75 Year
  Sex: Female

DRUGS (8)
  1. TYMLOS [Suspect]
     Active Substance: ABALOPARATIDE
     Indication: Osteoporotic fracture
     Dosage: 80 MICROGRAM, QD
     Route: 058
     Dates: start: 20230925
  2. METOPROLOL SUCCINATE [Concomitant]
     Active Substance: METOPROLOL SUCCINATE
     Indication: Product used for unknown indication
     Dosage: 135MG, 1.5 TABL
     Route: 048
  3. NYSTATIN [Concomitant]
     Active Substance: NYSTATIN
     Indication: Product used for unknown indication
     Dosage: 220 MG, DAILY
  4. ELIQUIS [Concomitant]
     Active Substance: APIXABAN
     Indication: Product used for unknown indication
     Dosage: 5 MG, BID
     Route: 048
  5. LEVOTHYROXINE SODIUM [Concomitant]
     Active Substance: LEVOTHYROXINE SODIUM
     Indication: Product used for unknown indication
     Dosage: 50 MG, IN AM
     Route: 048
  6. HCL PLUS [AMMONIUM CHLORIDE;BETAINE HYDROCHLORIDE;GLUTAMIC ACID HYDROC [Concomitant]
     Indication: Product used for unknown indication
     Dosage: 100 MCG, QD
  7. THERIMIN [Concomitant]
     Indication: Product used for unknown indication
     Dosage: 1 TABLET, QD
     Route: 048
  8. ASPIRIN [Concomitant]
     Active Substance: ASPIRIN
     Indication: Product used for unknown indication
     Dosage: 1 DOSE FORM, QD

REACTIONS (3)
  - Therapy interrupted [Recovered/Resolved]
  - Injury associated with device [Recovered/Resolved]
  - Product use complaint [Unknown]

NARRATIVE: CASE EVENT DATE: 20230801
